FAERS Safety Report 8998410 (Version 1)
Quarter: 2013Q1

REPORT INFORMATION
  Report Type: Spontaneous
  Country: VN (occurrence: VN)
  Receive Date: 20130103
  Receipt Date: 20130103
  Transmission Date: 20140127
  Serious: Yes (Death, Other)
  Sender: FDA-Public Use
  Company Number: VN-BAXTER-2012BAX029072

PATIENT
  Age: 54 Year
  Sex: Female

DRUGS (1)
  1. DIANEAL LOW CALCIUM (2,5MEQ.L) PERITIONEAL DIALYSIS SOLUTION WITH 2.5% [Suspect]
     Indication: PERITONEAL DIALYSIS
     Route: 033
     Dates: start: 20101115, end: 20121215

REACTIONS (4)
  - Cerebrovascular accident [Fatal]
  - Hypertension [Fatal]
  - Foaming at mouth [Unknown]
  - Fall [Unknown]
